FAERS Safety Report 7768014-1 (Version None)
Quarter: 2011Q3

REPORT INFORMATION
  Report Type: 
  Country: None (occurrence: None)
  Receive Date: 20110922
  Receipt Date: 20101202
  Transmission Date: 20111222
  Serious: No
  Sender: FDA-Public Use
  Company Number: US-ASTRAZENECA-2010SE57186

PATIENT
  Age: 754 Month
  Sex: Male
  Weight: 95.3 kg

DRUGS (1)
  1. SEROQUEL [Suspect]
     Indication: BIPOLAR DISORDER
     Dosage: 200MG IN THE MORNING AND 400MG AT HS
     Route: 048
     Dates: start: 20060101, end: 20101101

REACTIONS (4)
  - INSOMNIA [None]
  - IMPAIRED WORK ABILITY [None]
  - DRUG DOSE OMISSION [None]
  - DEPRESSION [None]
